FAERS Safety Report 7353843-9 (Version None)
Quarter: 2011Q1

REPORT INFORMATION
  Report Type: 
  Country: None (occurrence: None)
  Receive Date: 20110315
  Receipt Date: 20110215
  Transmission Date: 20110831
  Serious: No
  Sender: FDA-Public Use
  Company Number: US-BAYER-2011-015958

PATIENT
  Sex: Male

DRUGS (2)
  1. ALEVE (CAPLET) [Suspect]
     Indication: SPONDYLITIS
     Dosage: BOTTLE COUNT UNK
     Dates: start: 20110201
  2. MUSCLE RELAXANT [Concomitant]

REACTIONS (1)
  - NO ADVERSE EVENT [None]
